FAERS Safety Report 10659014 (Version 2)
Quarter: 2015Q3

REPORT INFORMATION
  Report Type: Spontaneous
  Country: DK (occurrence: DK)
  Receive Date: 20141217
  Receipt Date: 20150714
  Transmission Date: 20151125
  Serious: Yes (Disabling)
  Sender: FDA-Public Use
  Company Number: DK-ACTAVIS-2014-26646

PATIENT
  Age: 40 Year
  Sex: Female

DRUGS (15)
  1. PANODIL [Concomitant]
     Active Substance: ACETAMINOPHEN
     Indication: PAIN
     Dosage: 1 G, QID
     Route: 048
     Dates: start: 20140922, end: 20150213
  2. DEXAMETHASONE. [Concomitant]
     Active Substance: DEXAMETHASONE
     Indication: NAUSEA
     Dosage: 20 MG, UNKNOWN
     Route: 042
     Dates: start: 20140528
  3. ONDANSETRON [Concomitant]
     Active Substance: ONDANSETRON
     Indication: NAUSEA
     Dosage: 8 MG, UNKNOWN
     Route: 048
     Dates: start: 20140528, end: 20140923
  4. DOCETAXEL HOSPIRA [Suspect]
     Active Substance: DOCETAXEL
     Indication: BREAST CANCER
     Dosage: 180 MG, 1/ THREE WEEKS. DOSE REDUCED BY THE SECOND SERIES
     Route: 042
     Dates: start: 20140731, end: 20140922
  5. MOTILIUM [Concomitant]
     Active Substance: DOMPERIDONE
     Indication: PRODUCT USED FOR UNKNOWN INDICATION
     Dosage: UNK
     Route: 065
     Dates: start: 20140618
  6. EPIRUBICIN ACTAVIS [Suspect]
     Active Substance: EPIRUBICIN
     Indication: BREAST CANCER
     Dosage: 160 MG, CYCLICAL; 3 SERIES GIVEN THE 28 / 05-14, 18 / 06-14 AND 09 / 07-14
     Route: 042
     Dates: start: 20140528, end: 20140709
  7. HERCEPTIN [Suspect]
     Active Substance: TRASTUZUMAB
     Indication: BREAST CANCER
     Dosage: 476 MG,1/ THREE WEEKS. 3 SERIES GIVEN I.V: 31/07-14 (476MG), 28/08-14 (420 MG)AND  22/09-14 (420 MG)
     Route: 042
     Dates: start: 20140731, end: 20140922
  8. SENDOXAN [Suspect]
     Active Substance: CYCLOPHOSPHAMIDE
     Indication: BREAST CANCER
     Dosage: 1000 MG, UNKNOWN. (3 SERIES: 28 / 05-14, 18 / 06-14 AND 09 / 07-14)
     Route: 042
     Dates: start: 20140528, end: 20140709
  9. DOLOL [Concomitant]
     Active Substance: TRAMADOL
     Indication: PRODUCT USED FOR UNKNOWN INDICATION
     Dosage: UNK
     Route: 048
     Dates: start: 20140922
  10. PANTOPRAZOLE [Concomitant]
     Active Substance: PANTOPRAZOLE SODIUM
     Indication: GASTROOESOPHAGEAL REFLUX DISEASE
     Dosage: 40 MG, DAILY
     Route: 048
     Dates: start: 20140809
  11. NEULASTA [Concomitant]
     Active Substance: PEGFILGRASTIM
     Indication: NEUTROPENIA
     Dosage: 6 MG, UNKNOWN
     Route: 058
     Dates: start: 20140827, end: 20140827
  12. CATAPRESAN                         /00171101/ [Concomitant]
     Active Substance: CLONIDINE
     Indication: HOT FLUSH
     Dosage: 25 ?G, BID. MAX X3
     Route: 048
     Dates: start: 20140901
  13. EMEND [Concomitant]
     Active Substance: APREPITANT
     Indication: PRODUCT USED FOR UNKNOWN INDICATION
     Dosage: UNK
     Route: 048
     Dates: start: 20140718
  14. HERCEPTIN [Suspect]
     Active Substance: TRASTUZUMAB
     Dosage: 600 MG, 1/ THREE WEEKS
     Route: 058
     Dates: start: 20141021, end: 20141031
  15. PREDNISOLON                        /00016201/ [Concomitant]
     Active Substance: PREDNISOLONE
     Indication: PRODUCT USED FOR UNKNOWN INDICATION
     Dosage: UNK
     Route: 065
     Dates: start: 20140618

REACTIONS (3)
  - Arthralgia [Recovering/Resolving]
  - Myalgia [Not Recovered/Not Resolved]
  - Fatigue [Not Recovered/Not Resolved]

NARRATIVE: CASE EVENT DATE: 201406
